FAERS Safety Report 10190988 (Version 1)
Quarter: 2014Q2

REPORT INFORMATION
  Report Type: Spontaneous
  Country: US (occurrence: None)
  Receive Date: 20140521
  Receipt Date: 20140521
  Transmission Date: 20141212
  Serious: Yes (Disabling, Other)
  Sender: FDA-Public Use
  Company Number: None

PATIENT
  Age: 74 Year
  Sex: Male
  Weight: 72.7 kg

DRUGS (3)
  1. PRAVASTATIN [Suspect]
     Indication: HYPERLIPIDAEMIA
     Dates: start: 2010, end: 2012
  2. ZOCOR [Suspect]
     Indication: HYPERLIPIDAEMIA
     Dates: start: 2013, end: 2014
  3. LIPITOR [Suspect]
     Indication: HYPERLIPIDAEMIA
     Dates: start: 2013, end: 2014

REACTIONS (6)
  - Muscle spasms [None]
  - Joint contracture [None]
  - Muscle contracture [None]
  - Gait disturbance [None]
  - Stress [None]
  - Fatigue [None]
